FAERS Safety Report 7433397-9 (Version None)
Quarter: 2011Q2

REPORT INFORMATION
  Report Type: 
  Country: None (occurrence: None)
  Receive Date: 20110422
  Receipt Date: 20110418
  Transmission Date: 20111010
  Serious: Yes (Death, Hospitalization, Other)
  Sender: FDA-Public Use
  Company Number: MY-GENZYME-POMP-1000927

PATIENT
  Age: 24 Month
  Sex: Male

DRUGS (2)
  1. MYOZYME [Suspect]
     Indication: GLYCOGEN STORAGE DISEASE TYPE II
     Dosage: 20 MG/KG, Q2W
     Route: 042
  2. GLYCOPYRROLATE [Concomitant]
     Indication: GASTROOESOPHAGEAL REFLUX DISEASE
     Route: 048

REACTIONS (9)
  - FEMUR FRACTURE [None]
  - FEEDING DISORDER [None]
  - ASPIRATION [None]
  - CALCULUS BLADDER [None]
  - PNEUMONIA [None]
  - SUBACUTE ENDOCARDITIS [None]
  - RESPIRATORY FAILURE [None]
  - OSTEOPENIA [None]
  - NEPHROCALCINOSIS [None]
